FAERS Safety Report 4821889-8 (Version None)
Quarter: 2005Q4

REPORT INFORMATION
  Report Type: 
  Country: None (occurrence: None)
  Receive Date: 20051107
  Receipt Date: 20051031
  Transmission Date: 20060501
  Serious: Yes (Hospitalization)
  Sender: FDA-Public Use
  Company Number: US-ROCHE-423045

PATIENT
  Age: 75 Year
  Sex: Female
  Weight: 45 kg

DRUGS (1)
  1. CAPECITABINE [Suspect]
     Dosage: 2 WEEKS TREATMENT FOLLOWED BY ONE WEEK REST.
     Route: 048
     Dates: start: 20050831

REACTIONS (7)
  - ANAEMIA [None]
  - CHOLECYSTITIS [None]
  - CULTURE URINE POSITIVE [None]
  - HERPES OESOPHAGITIS [None]
  - NEUROGENIC BLADDER [None]
  - PSEUDOMONAS INFECTION [None]
  - STAPHYLOCOCCAL INFECTION [None]
